FAERS Safety Report 6490705-3 (Version None)
Quarter: 2009Q4

REPORT INFORMATION
  Report Type: 
  Country: None (occurrence: None)
  Receive Date: 20091211
  Receipt Date: 20091203
  Transmission Date: 20100525
  Serious: Yes (Hospitalization)
  Sender: FDA-Public Use
  Company Number: B0593535A

PATIENT
  Sex: Female

DRUGS (2)
  1. TOPOTECAN [Suspect]
     Dosage: 3.2MG CYCLIC
     Route: 042
     Dates: start: 20090826
  2. PACLITAXEL [Suspect]
     Dosage: 128MG CYCLIC
     Route: 042
     Dates: start: 20090826

REACTIONS (2)
  - DYSPNOEA [None]
  - SINUS TACHYCARDIA [None]
